FAERS Safety Report 10378917 (Version 1)
Quarter: 2014Q3

REPORT INFORMATION
  Report Type: Report from Study
  Country: CL (occurrence: CL)
  Receive Date: 20140812
  Receipt Date: 20140812
  Transmission Date: 20150326
  Serious: Yes (Other)
  Sender: FDA-Public Use
  Company Number: CL-BRISTOL-MYERS SQUIBB COMPANY-21289442

PATIENT
  Sex: Female

DRUGS (6)
  1. PREDNISONE. [Concomitant]
     Active Substance: PREDNISONE
  2. ACLASTA [Concomitant]
     Active Substance: ZOLEDRONIC ACID
  3. EUTIROX [Concomitant]
     Active Substance: LEVOTHYROXINE SODIUM
  4. ORENCIA [Suspect]
     Active Substance: ABATACEPT
     Indication: RHEUMATOID ARTHRITIS
     Dosage: 2VIALS
     Route: 042
  5. NOVOCAIN [Concomitant]
     Active Substance: PROCAINE HYDROCHLORIDE
  6. ARCOXIA [Concomitant]
     Active Substance: ETORICOXIB

REACTIONS (1)
  - Cataract [Recovered/Resolved]
